FAERS Safety Report 16137711 (Version 2)
Quarter: 2019Q2

REPORT INFORMATION
  Report Type: Report from Study
  Country: DE (occurrence: DE)
  Receive Date: 20190401
  Receipt Date: 20190418
  Transmission Date: 20190711
  Serious: Yes (Hospitalization)
  Sender: FDA-Public Use
  Company Number: DE-ROCHE-2292275

PATIENT
  Age: 37 Year
  Sex: Female

DRUGS (4)
  1. CISPLATIN. [Suspect]
     Active Substance: CISPLATIN
     Indication: OVARIAN CANCER
     Dosage: THE DATE OF MOST RECENT DOSE OF CISPLATIN PRIOR TO EVENT ONSET: 24/JAN/2019
     Route: 042
     Dates: start: 20180927, end: 20190402
  2. ATEZOLIZUMAB. [Suspect]
     Active Substance: ATEZOLIZUMAB
     Indication: OVARIAN CANCER
     Dosage: THE DATE OF MOST RECENT DOSE OF BLINDED ATEZOLIZUMAB PRIOR TO EVENT ONSET: 07/MAR/2019
     Route: 042
     Dates: start: 20180927, end: 20190402
  3. BEVACIZUMAB. [Suspect]
     Active Substance: BEVACIZUMAB
     Indication: OVARIAN CANCER
     Dosage: THE DATE OF MOST RECENT DOSE OF BEVACIZUMAB PRIOR TO EVENT ONSET: 07/MAR/2019
     Route: 042
     Dates: start: 20180927, end: 20190402
  4. PACLITAXEL. [Suspect]
     Active Substance: PACLITAXEL
     Indication: OVARIAN CANCER
     Dosage: THE DATE OF MOST RECENT DOSE OF PACLITAXEL PRIOR TO EVENT ONSET: 24/JAN/2019
     Route: 042
     Dates: start: 20180927, end: 20190402

REACTIONS (1)
  - Ileus [Recovered/Resolved with Sequelae]

NARRATIVE: CASE EVENT DATE: 20190307
